FAERS Safety Report 7005166-5 (Version None)
Quarter: 2010Q3

REPORT INFORMATION
  Report Type: 
  Country: None (occurrence: None)
  Receive Date: 20100920
  Receipt Date: 20100920
  Transmission Date: 20110219
  Serious: Yes (Life-Threatening, Hospitalization)
  Sender: FDA-Public Use
  Company Number: None

PATIENT
  Age: 54 Year
  Sex: Female
  Weight: 58.06 kg

DRUGS (1)
  1. NATALIZUMAB [Suspect]
     Indication: MULTIPLE SCLEROSIS
     Dosage: 300 MG UD IV
     Dates: start: 20100325, end: 20100325

REACTIONS (4)
  - ANGIOEDEMA [None]
  - PRURITUS [None]
  - PRURITUS GENITAL [None]
  - URTICARIA [None]
